FAERS Safety Report 5025296-7 (Version None)
Quarter: 2006Q2

REPORT INFORMATION
  Report Type: 
  Country: None (occurrence: None)
  Receive Date: 20060607
  Receipt Date: 20060517
  Transmission Date: 20061013
  Serious: Yes (Other)
  Sender: FDA-Public Use
  Company Number: US200605003794

PATIENT
  Age: 79 Year
  Sex: Female

DRUGS (2)
  1. FORTEO [Suspect]
     Indication: OSTEOPOROSIS
     Dates: start: 20040101
  2. FORTEO [Concomitant]

REACTIONS (5)
  - DACRYOSTENOSIS ACQUIRED [None]
  - HEART RATE INCREASED [None]
  - HEART RATE IRREGULAR [None]
  - MALIGNANT NEOPLASM OF EYE [None]
  - PHARMACEUTICAL PRODUCT COMPLAINT [None]
